FAERS Safety Report 9332708 (Version 1)
Quarter: 2013Q2

REPORT INFORMATION
  Report Type: Report from Study
  Country: CA (occurrence: CA)
  Receive Date: 20130606
  Receipt Date: 20130606
  Transmission Date: 20140414
  Serious: Yes (Other)
  Sender: FDA-Public Use
  Company Number: CA-JNJFOC-20130113778

PATIENT
  Age: 34 Year
  Sex: Female
  Weight: 68.2 kg

DRUGS (6)
  1. REMICADE [Suspect]
     Indication: CROHN^S DISEASE
     Route: 042
     Dates: start: 20130420
  2. REMICADE [Suspect]
     Indication: CROHN^S DISEASE
     Route: 042
     Dates: start: 20130123
  3. REMICADE [Suspect]
     Indication: CROHN^S DISEASE
     Route: 042
     Dates: start: 20060110
  4. TYLENOL [Suspect]
     Route: 065
  5. TYLENOL [Suspect]
     Indication: PREMEDICATION
     Route: 065
  6. SOLUCORTEF [Suspect]
     Indication: PREMEDICATION
     Route: 065

REACTIONS (5)
  - Dehydration [Recovering/Resolving]
  - Influenza like illness [Recovering/Resolving]
  - Fall [Not Recovered/Not Resolved]
  - Exposure during pregnancy [Not Recovered/Not Resolved]
  - Myalgia [Not Recovered/Not Resolved]
